FAERS Safety Report 8348317-2 (Version None)
Quarter: 2012Q2

REPORT INFORMATION
  Report Type: 
  Country: None (occurrence: None)
  Receive Date: 20120509
  Receipt Date: 20120425
  Transmission Date: 20120825
  Serious: Yes (Death, Hospitalization)
  Sender: FDA-Public Use
  Company Number: DE-BAXTER-2010BH017332

PATIENT
  Sex: Female

DRUGS (12)
  1. PHYSIOSOL IN PLASTIC CONTAINER [Suspect]
     Route: 033
  2. RAMIPRIL [Concomitant]
     Route: 065
  3. DREISACARB [Concomitant]
     Route: 065
  4. XIPAMID [Concomitant]
     Route: 065
  5. NUTRINEAL [Suspect]
     Route: 033
  6. FUROSEMIDE [Concomitant]
     Route: 065
  7. DEKRISTOL [Concomitant]
     Route: 065
  8. PHYSIONEAL 40 GLUCOSE 3,86 % W/V 38,6 MG/ML PERITONEALDIALYSELOSUNG [Suspect]
     Route: 033
  9. ZINC SULFATE [Concomitant]
     Route: 065
  10. METOPROLOL TARTRATE [Concomitant]
     Route: 065
  11. NIFEDIPINE [Concomitant]
     Route: 065
  12. DREISAVIT                          /00844801/ [Concomitant]
     Route: 065

REACTIONS (7)
  - CANDIDIASIS [None]
  - MARASMUS [None]
  - PERITONITIS BACTERIAL [None]
  - SMALL INTESTINAL PERFORATION [None]
  - CHEMICAL PERITONITIS [None]
  - PNEUMONIA ASPIRATION [None]
  - CARDIAC ARREST [None]
